FAERS Safety Report 7387188-8 (Version None)
Quarter: 2011Q1

REPORT INFORMATION
  Report Type: 
  Country: None (occurrence: None)
  Receive Date: 20110331
  Receipt Date: 20110322
  Transmission Date: 20110831
  Serious: Yes (Death, Other)
  Sender: FDA-Public Use
  Company Number: B0708317A

PATIENT
  Age: 53 Year
  Sex: Male

DRUGS (7)
  1. FLUDARABINE PHOSPHATE [Suspect]
     Route: 065
  2. CYTARABINE [Suspect]
     Route: 065
  3. ANTI-THYMOCYTE GLOBULIN NOS [Suspect]
     Route: 042
  4. TACROLIMUS HYDRATE [Concomitant]
     Indication: PROPHYLAXIS AGAINST GRAFT VERSUS HOST DISEASE
     Route: 065
  5. ALKERAN [Suspect]
     Route: 042
  6. METHYLPREDNISOLONE [Concomitant]
     Indication: PROPHYLAXIS AGAINST GRAFT VERSUS HOST DISEASE
     Route: 065
  7. MYCOPHENOLATE MOFETIL [Concomitant]
     Indication: PROPHYLAXIS AGAINST GRAFT VERSUS HOST DISEASE
     Route: 048

REACTIONS (6)
  - PARAPLEGIA [None]
  - SENSORY LOSS [None]
  - AXONAL NEUROPATHY [None]
  - NON-HODGKIN'S LYMPHOMA RECURRENT [None]
  - PARALYSIS FLACCID [None]
  - NEUROPATHY PERIPHERAL [None]
